FAERS Safety Report 24457894 (Version 1)
Quarter: 2024Q4

REPORT INFORMATION
  Report Type: Report from Study
  Country: US (occurrence: US)
  Receive Date: 20241018
  Receipt Date: 20241018
  Transmission Date: 20250114
  Serious: No
  Sender: ROCHE
  Company Number: US-ROCHE-3449104

PATIENT
  Age: 63 Year
  Sex: Female

DRUGS (3)
  1. CATHFLO ACTIVASE [Suspect]
     Active Substance: ALTEPLASE
     Indication: Hypertensive heart disease
     Dosage: DATE OF SERVICE: 16/SEP/2023, 25/OCT/2023?HE FURTHER RECEIVED A DOSE OF 8 MG.
     Route: 065
  2. CATHFLO ACTIVASE [Suspect]
     Active Substance: ALTEPLASE
     Indication: Chronic kidney disease
  3. CATHFLO ACTIVASE [Suspect]
     Active Substance: ALTEPLASE
     Indication: Cardiac failure

REACTIONS (2)
  - Off label use [Unknown]
  - No adverse event [Unknown]
